FAERS Safety Report 24833553 (Version 1)
Quarter: 2025Q1

REPORT INFORMATION
  Report Type: Spontaneous
  Country: US (occurrence: US)
  Receive Date: 20250112
  Receipt Date: 20250112
  Transmission Date: 20250408
  Serious: No
  Sender: NOVARTIS
  Company Number: US-002147023-NVSC2025US003816

PATIENT

DRUGS (1)
  1. COSENTYX [Suspect]
     Active Substance: SECUKINUMAB
     Indication: Hidradenitis
     Route: 065

REACTIONS (5)
  - Drug ineffective [Unknown]
  - Furuncle [Unknown]
  - Mastitis [Unknown]
  - Groin infection [Unknown]
  - Skin disorder [Unknown]
